FAERS Safety Report 20966642 (Version 1)
Quarter: 2022Q2

REPORT INFORMATION
  Report Type: Spontaneous
  Country: US (occurrence: None)
  Receive Date: 20220614
  Receipt Date: 20220614
  Transmission Date: 20220721
  Serious: Yes (Hospitalization)
  Sender: FDA-Public Use
  Company Number: None

PATIENT
  Age: 63 Year
  Sex: Male
  Weight: 92.4 kg

DRUGS (2)
  1. NIVOLUMAB [Suspect]
     Active Substance: NIVOLUMAB
     Dosage: FREQUENCY : MONTHLY;?
     Route: 042
     Dates: start: 20210811, end: 20210811
  2. RELATLIMAB [Suspect]
     Active Substance: RELATLIMAB
     Dosage: FREQUENCY : MONTHLY;?
     Route: 042
     Dates: start: 20210811, end: 20210811

REACTIONS (6)
  - Cellulitis [None]
  - Nausea [None]
  - Vomiting [None]
  - Pyrexia [None]
  - White blood cell count decreased [None]
  - Urine leukocyte esterase positive [None]

NARRATIVE: CASE EVENT DATE: 20210903
